FAERS Safety Report 7806374-3 (Version None)
Quarter: 2011Q4

REPORT INFORMATION
  Report Type: 
  Country: None (occurrence: None)
  Receive Date: 20111011
  Receipt Date: 20111004
  Transmission Date: 20120403
  Serious: Yes (Life-Threatening, Hospitalization)
  Sender: FDA-Public Use
  Company Number: IT-BRISTOL-MYERS SQUIBB COMPANY-16133761

PATIENT
  Age: 82 Year
  Sex: Male

DRUGS (1)
  1. COUMADIN [Suspect]
     Indication: ATRIAL FIBRILLATION
     Dosage: INTERRUPT ON 02OCT2011
     Route: 048
     Dates: start: 20100901

REACTIONS (4)
  - MELAENA [None]
  - HAEMORRHAGIC ANAEMIA [None]
  - HAEMATEMESIS [None]
  - CHEST PAIN [None]
